FAERS Safety Report 4939412-6 (Version None)
Quarter: 2006Q1

REPORT INFORMATION
  Report Type: 
  Country: None (occurrence: None)
  Receive Date: 20060307
  Receipt Date: 20060220
  Transmission Date: 20060701
  Serious: Yes (Other)
  Sender: FDA-Public Use
  Company Number: 2006-DE-00961GD

PATIENT
  Age: 29 Year
  Sex: Female

DRUGS (3)
  1. ZIDOVUDINE [Suspect]
     Indication: HIV INFECTION
     Dosage: NR
  2. LAMIVUDINE [Suspect]
     Indication: HIV INFECTION
     Dosage: NR
  3. NELFINAVIR (NELFINAVIR) [Suspect]
     Indication: HIV INFECTION
     Dosage: NR

REACTIONS (2)
  - DRUG EXPOSURE DURING PREGNANCY [None]
  - INTRA-UTERINE DEATH [None]
